FAERS Safety Report 21284462 (Version 4)
Quarter: 2022Q4

REPORT INFORMATION
  Report Type: Spontaneous
  Country: ES (occurrence: ES)
  Receive Date: 20220902
  Receipt Date: 20221012
  Transmission Date: 20230112
  Serious: Yes (Hospitalization, Other)
  Sender: FDA-Public Use
  Company Number: ES-MLMSERVICE-20220801-3709325-2

PATIENT
  Age: 25 Year
  Sex: Male

DRUGS (8)
  1. INVEGA [Suspect]
     Active Substance: PALIPERIDONE
     Indication: Schizophrenia
     Route: 048
  2. PALIPERIDONE PALMITATE [Suspect]
     Active Substance: PALIPERIDONE PALMITATE
     Indication: Schizophrenia
     Route: 030
  3. PALIPERIDONE PALMITATE [Suspect]
     Active Substance: PALIPERIDONE PALMITATE
  4. PALIPERIDONE PALMITATE [Suspect]
     Active Substance: PALIPERIDONE PALMITATE
  5. RISPERIDONE [Suspect]
     Active Substance: RISPERIDONE
     Indication: Schizophrenia
     Dosage: UNK
     Route: 065
  6. RISPERIDONE [Suspect]
     Active Substance: RISPERIDONE
     Indication: Substance-induced psychotic disorder
  7. CLOZAPINE [Suspect]
     Active Substance: CLOZAPINE
     Indication: Schizophrenia
     Dosage: AUGMENT TREATMENT WITH CLOZAPINE UNTIL A DOSE OF 400 MG PER DAY WAS REACHED
     Route: 065
  8. CLOZAPINE [Suspect]
     Active Substance: CLOZAPINE
     Dosage: AUGMENT TREATMENT WITH CLOZAPINE UNTIL A DOSE OF 400 MG PER DAY WAS REACHED

REACTIONS (17)
  - Drug ineffective [Recovered/Resolved]
  - Intentional product misuse [Unknown]
  - Sexual dysfunction [Unknown]
  - Dysarthria [Unknown]
  - Drooling [Unknown]
  - Psychomotor retardation [Recovering/Resolving]
  - Somnolence [Unknown]
  - Tremor [Recovering/Resolving]
  - Muscle rigidity [Recovering/Resolving]
  - Treatment noncompliance [Unknown]
  - Delusion of reference [Recovering/Resolving]
  - Hallucination, auditory [Recovering/Resolving]
  - Blunted affect [Unknown]
  - Personality change [Unknown]
  - Soliloquy [Unknown]
  - Persecutory delusion [Recovering/Resolving]
  - Extrapyramidal disorder [Recovering/Resolving]
